FAERS Safety Report 9878358 (Version 2)
Quarter: 2014Q1

REPORT INFORMATION
  Report Type: Spontaneous
  Country: US (occurrence: US)
  Receive Date: 20140206
  Receipt Date: 20140206
  Transmission Date: 20141002
  Serious: No
  Sender: FDA-Public Use
  Company Number: US-ALLERGAN-1310768US

PATIENT
  Age: 62 Year
  Sex: Female

DRUGS (3)
  1. BOTOX [Suspect]
     Indication: MIGRAINE
     Dosage: UNK, SINGLE
     Route: 030
     Dates: start: 20130529, end: 20130529
  2. SYNTHROID [Concomitant]
     Indication: THYROIDECTOMY
     Dosage: UNK
  3. VITAMIN D                          /00107901/ [Concomitant]
     Indication: SUPPLEMENTATION THERAPY
     Dosage: UNK

REACTIONS (8)
  - Muscle twitching [Not Recovered/Not Resolved]
  - Migraine [Recovered/Resolved]
  - Headache [Recovered/Resolved]
  - Neck pain [Not Recovered/Not Resolved]
  - Facial paresis [Recovering/Resolving]
  - Drug ineffective [Unknown]
  - Neck pain [Unknown]
  - Musculoskeletal pain [Unknown]
